FAERS Safety Report 18753983 (Version 17)
Quarter: 2021Q3

REPORT INFORMATION
  Report Type: Report from Study
  Country: MX (occurrence: MX)
  Receive Date: 20210119
  Receipt Date: 20210916
  Transmission Date: 20211014
  Serious: Yes (Other)
  Sender: FDA-Public Use
  Company Number: MX-TAKEDA-MX202009047

PATIENT
  Age: 3 Year
  Sex: Male
  Weight: 16 kg

DRUGS (13)
  1. BACTRIM [Concomitant]
     Active Substance: SULFAMETHOXAZOLE\TRIMETHOPRIM
     Indication: PRODUCT USED FOR UNKNOWN INDICATION
     Dosage: 6ML, EVERY 12 HOURS DURING 4 DAYS
     Route: 065
     Dates: start: 20210107
  2. IDURSULFASE [Suspect]
     Active Substance: IDURSULFASE
     Dosage: UNK
     Route: 065
     Dates: start: 20200429
  3. IDURSULFASE [Suspect]
     Active Substance: IDURSULFASE
     Dosage: 12 MILLIGRAM (2 DOSAGE FORM), 1/WEEK
     Route: 042
     Dates: start: 20161223
  4. IDURSULFASE [Suspect]
     Active Substance: IDURSULFASE
     Dosage: 18 MILLIGRAM (3 DOSAGE FORM), 1/WEEK
     Route: 042
     Dates: start: 20160601
  5. IDURSULFASE [Suspect]
     Active Substance: IDURSULFASE
     Dosage: 1 DOSAGE FORM, 1/WEEK
     Route: 042
     Dates: start: 20161212
  6. IDURSULFASE [Suspect]
     Active Substance: IDURSULFASE
     Dosage: 2 DOSAGE FORM, 1/WEEK
     Route: 058
     Dates: start: 20160812
  7. IDURSULFASE [Suspect]
     Active Substance: IDURSULFASE
     Dosage: 2 DOSAGE FORM, 1/WEEK
     Route: 042
     Dates: start: 20160601
  8. PRECICOL [Concomitant]
     Indication: PRODUCT USED FOR UNKNOWN INDICATION
     Dosage: 30 DROPS, EVERY 8 HOURS, DURING 3 DAYS
     Route: 065
     Dates: start: 20210107
  9. IDURSULFASE [Suspect]
     Active Substance: IDURSULFASE
     Indication: MUCOPOLYSACCHARIDOSIS II
     Dosage: 1 DOSAGE FORM, 1/WEEK
     Route: 042
     Dates: start: 20160812
  10. IDURSULFASE [Suspect]
     Active Substance: IDURSULFASE
     Dosage: 2 DOSAGE FORM, 1/WEEK
     Route: 042
     Dates: start: 20161223
  11. IDURSULFASE [Suspect]
     Active Substance: IDURSULFASE
     Dosage: UNK
     Route: 042
     Dates: start: 20200227
  12. IDURSULFASE [Suspect]
     Active Substance: IDURSULFASE
     Dosage: 12 MILLIGRAM, 1/WEEK (2 VIALS EVERY 7 DAYS)
     Route: 042
     Dates: start: 20160101
  13. BONADOXIN [Concomitant]
     Indication: PRODUCT USED FOR UNKNOWN INDICATION
     Dosage: 10 DROPS, EVERY 12 HOURS, DURING 3 DAYS
     Route: 065
     Dates: start: 20120107

REACTIONS (4)
  - Product availability issue [Not Recovered/Not Resolved]
  - Varicella [Recovering/Resolving]
  - Therapy interrupted [Not Recovered/Not Resolved]
  - Pharyngotonsillitis [Unknown]

NARRATIVE: CASE EVENT DATE: 20200304
